FAERS Safety Report 8140954-3 (Version None)
Quarter: 2012Q1

REPORT INFORMATION
  Report Type: 
  Country: None (occurrence: None)
  Receive Date: 20120216
  Receipt Date: 20120208
  Transmission Date: 20120608
  Serious: Yes (Hospitalization)
  Sender: FDA-Public Use
  Company Number: PHHO2008US07172

PATIENT
  Sex: Male
  Weight: 70.6 kg

DRUGS (2)
  1. DOCETAXEL [Suspect]
     Dosage: 75 MG/M2
     Route: 042
  2. LBH589 [Suspect]
     Indication: PROSTATE CANCER
     Dosage: 10 MG/M2
     Route: 042
     Dates: start: 20080521, end: 20080603

REACTIONS (6)
  - FEBRILE NEUTROPENIA [None]
  - LYMPHOPENIA [None]
  - SINUS BRADYCARDIA [None]
  - SYNCOPE [None]
  - DIZZINESS [None]
  - THROMBOCYTOPENIA [None]
